FAERS Safety Report 10605657 (Version 1)
Quarter: 2014Q4

REPORT INFORMATION
  Report Type: Spontaneous
  Country: NL (occurrence: NL)
  Receive Date: 20141125
  Receipt Date: 20141125
  Transmission Date: 20150529
  Serious: Yes (Hospitalization)
  Sender: FDA-Public Use
  Company Number: PHHY2014NL149160

PATIENT
  Age: 76 Year
  Sex: Male
  Weight: 83 kg

DRUGS (3)
  1. FOLIC ACID. [Suspect]
     Active Substance: FOLIC ACID
     Indication: FOLATE DEFICIENCY
     Dosage: 1 DF, QD
     Route: 048
     Dates: start: 20140626, end: 20140809
  2. BONUSAN [Interacting]
     Active Substance: COBAMAMIDE
     Indication: FOLATE DEFICIENCY
     Dosage: 1 DF, QD
     Route: 048
     Dates: start: 20140626, end: 20140809
  3. EFUDIX [Interacting]
     Active Substance: FLUOROURACIL
     Indication: SKIN CANCER
     Route: 003
     Dates: start: 20140726, end: 20140809

REACTIONS (1)
  - Myocardial infarction [Recovered/Resolved]

NARRATIVE: CASE EVENT DATE: 20140803
